FAERS Safety Report 16785121 (Version 3)
Quarter: 2019Q4

REPORT INFORMATION
  Report Type: Spontaneous
  Country: JP (occurrence: JP)
  Receive Date: 20190909
  Receipt Date: 20191023
  Transmission Date: 20200122
  Serious: Yes (Death, Other)
  Sender: FDA-Public Use
  Company Number: JP-ACTELION-A-CH2019-195122

PATIENT
  Age: 56 Year
  Sex: Male

DRUGS (10)
  1. ALDACTONE A [Concomitant]
     Active Substance: SPIRONOLACTONE
  2. CYCLOSPORINE. [Concomitant]
     Active Substance: CYCLOSPORINE
     Route: 048
  3. URSO [Concomitant]
     Active Substance: URSODIOL
  4. FEBURIC [Concomitant]
     Active Substance: FEBUXOSTAT
  5. MIYA-BM [Concomitant]
     Active Substance: CLOSTRIDIUM BUTYRICUM SPORES STRAIN M-55
  6. PREDONINE [Concomitant]
     Active Substance: PREDNISOLONE
  7. OPSUMIT [Suspect]
     Active Substance: MACITENTAN
     Indication: PULMONARY HYPERTENSION
     Dosage: 10 MG, QD
     Route: 048
     Dates: start: 20181101, end: 20181105
  8. ACICLOVIR [Concomitant]
     Active Substance: ACYCLOVIR
  9. SAMSCA [Concomitant]
     Active Substance: TOLVAPTAN
  10. AZOSEMIDE [Concomitant]
     Active Substance: AZOSEMIDE

REACTIONS (11)
  - Alanine aminotransferase increased [Unknown]
  - Anaemia [Fatal]
  - Aspartate aminotransferase increased [Unknown]
  - Blood alkaline phosphatase increased [Unknown]
  - Dyspnoea [Fatal]
  - Septic shock [Fatal]
  - Hepatic enzyme increased [Unknown]
  - Gamma-glutamyltransferase increased [Unknown]
  - Pneumonia [Fatal]
  - Pulmonary alveolar haemorrhage [Fatal]
  - Pulmonary veno-occlusive disease [Not Recovered/Not Resolved]

NARRATIVE: CASE EVENT DATE: 20181105
